FAERS Safety Report 13555878 (Version 1)
Quarter: 2017Q2

REPORT INFORMATION
  Report Type: Spontaneous
  Country: US (occurrence: US)
  Receive Date: 20170517
  Receipt Date: 20170517
  Transmission Date: 20170830
  Serious: No
  Sender: FDA-Public Use
  Company Number: US-TAKEDA-2017TUS010144

PATIENT
  Age: 33 Year
  Sex: Female

DRUGS (1)
  1. TRINTELLIX [Suspect]
     Active Substance: VORTIOXETINE HYDROBROMIDE
     Indication: PRODUCT USED FOR UNKNOWN INDICATION
     Dosage: 10 MG, UNK
     Route: 065

REACTIONS (18)
  - Anger [Unknown]
  - Anxiety [Unknown]
  - Weight decreased [Unknown]
  - Feeling guilty [Unknown]
  - Vision blurred [Unknown]
  - Apathy [Unknown]
  - Fatigue [Unknown]
  - Hypersomnia [Unknown]
  - Constipation [Unknown]
  - Insomnia [Unknown]
  - Weight increased [Unknown]
  - Asthenia [Unknown]
  - Libido decreased [Unknown]
  - Vomiting [Unknown]
  - Irritability [Unknown]
  - Feeling abnormal [Unknown]
  - Dry mouth [Unknown]
  - Alcohol use [Unknown]

NARRATIVE: CASE EVENT DATE: 20160501
